FAERS Safety Report 10187052 (Version 1)
Quarter: 2014Q2

REPORT INFORMATION
  Report Type: Spontaneous
  Country: US (occurrence: US)
  Receive Date: 20140522
  Receipt Date: 20140522
  Transmission Date: 20141212
  Serious: Yes (Death, Other)
  Sender: FDA-Public Use
  Company Number: US-ALVOGEN-2014AL000662

PATIENT
  Age: 57 Year
  Sex: Female

DRUGS (1)
  1. DOXORUBICIN [Suspect]
     Indication: BREAST CANCER

REACTIONS (1)
  - Encephalopathy [Recovered/Resolved]
